FAERS Safety Report 17832471 (Version 1)
Quarter: 2020Q2

REPORT INFORMATION
  Report Type: Spontaneous
  Country: GB (occurrence: GB)
  Receive Date: 20200528
  Receipt Date: 20200528
  Transmission Date: 20200714
  Serious: Yes (Other)
  Sender: FDA-Public Use
  Company Number: GB-TEVA-2020-GB-1239851

PATIENT
  Age: 31 Year
  Sex: Male
  Weight: 104.32 kg

DRUGS (1)
  1. CLARITHROMYCIN. [Suspect]
     Active Substance: CLARITHROMYCIN
     Indication: EAR SWELLING
     Dosage: 500 MILLIGRAM
     Route: 048
     Dates: start: 20200426, end: 20200430

REACTIONS (4)
  - Headache [Recovered/Resolved with Sequelae]
  - Skin exfoliation [Recovered/Resolved]
  - Nausea [Recovered/Resolved]
  - Anxiety [Recovered/Resolved]

NARRATIVE: CASE EVENT DATE: 20200430
